FAERS Safety Report 8603074-7 (Version None)
Quarter: 2012Q3

REPORT INFORMATION
  Report Type: 
  Country: None (occurrence: None)
  Receive Date: 20120817
  Receipt Date: 20120808
  Transmission Date: 20120928
  Serious: Yes (Hospitalization, Other)
  Sender: FDA-Public Use
  Company Number: SE-ABBOTT-12P-150-0951091-00

PATIENT
  Sex: Female

DRUGS (7)
  1. METFORMIN HYDROCHLORIDE [Concomitant]
     Indication: PRODUCT USED FOR UNKNOWN INDICATION
  2. BISOPROLOL [Concomitant]
     Indication: PRODUCT USED FOR UNKNOWN INDICATION
  3. INSULIN LISPRO [Concomitant]
     Indication: PRODUCT USED FOR UNKNOWN INDICATION
     Route: 050
  4. PREDNISOLONE [Concomitant]
     Indication: PRODUCT USED FOR UNKNOWN INDICATION
  5. ACETAMINOPHEN [Concomitant]
     Indication: PRODUCT USED FOR UNKNOWN INDICATION
  6. HYDROCHLOROTHIAZIN [Concomitant]
     Indication: PRODUCT USED FOR UNKNOWN INDICATION
  7. HUMIRA [Suspect]
     Indication: RHEUMATOID ARTHRITIS
     Dosage: 80 MG PER MONTHS
     Route: 058
     Dates: start: 20091106, end: 20120601

REACTIONS (11)
  - CARDIAC VALVE VEGETATION [None]
  - MITRAL VALVE INCOMPETENCE [None]
  - JOINT WARMTH [None]
  - JOINT SWELLING [None]
  - OSTEITIS [None]
  - CONDITION AGGRAVATED [None]
  - MYOPERICARDITIS [None]
  - ARTHRALGIA [None]
  - STAPHYLOCOCCUS TEST POSITIVE [None]
  - CARDIAC MURMUR [None]
  - ARTHRITIS BACTERIAL [None]
